FAERS Safety Report 4639863-3 (Version None)
Quarter: 2005Q2

REPORT INFORMATION
  Report Type: 
  Country: None (occurrence: None)
  Receive Date: 20050418
  Receipt Date: 20050407
  Transmission Date: 20051028
  Serious: Yes (Hospitalization)
  Sender: FDA-Public Use
  Company Number: 2005044307

PATIENT
  Sex: Female

DRUGS (2)
  1. DOXEPIN HCL [Suspect]
     Indication: SLEEP DISORDER
     Dosage: 25 MG (1 IN 1 D), ORAL
     Route: 048
     Dates: start: 20040101, end: 20050310
  2. SERTRALINE HCL [Concomitant]

REACTIONS (1)
  - SUBILEUS [None]
